FAERS Safety Report 5189790-0 (Version None)
Quarter: 2006Q4

REPORT INFORMATION
  Report Type: 
  Country: None (occurrence: None)
  Receive Date: 20061215
  Receipt Date: 20061206
  Transmission Date: 20070319
  Serious: Yes (Life-Threatening, Other)
  Sender: FDA-Public Use
  Company Number: 2006150557

PATIENT
  Age: 12 Year
  Sex: 0

DRUGS (6)
  1. GABAPENTIN [Suspect]
     Indication: EPILEPSY
     Dosage: ORAL
     Route: 048
  2. PHENYTOIN [Concomitant]
  3. CLOBAZAM (CLOBAZAM) [Concomitant]
  4. EPILEO PETIT MAL (ETHOSUXIMIDE) [Concomitant]
  5. HALOPERIDOL [Concomitant]
  6. METHYCOBAL (MECOBALAMIN) [Concomitant]

REACTIONS (1)
  - CARDIO-RESPIRATORY ARREST [None]
